FAERS Safety Report 8208841-X (Version None)
Quarter: 2012Q1

REPORT INFORMATION
  Report Type: 
  Country: None (occurrence: None)
  Receive Date: 20120314
  Receipt Date: 20120308
  Transmission Date: 20120608
  Serious: Yes (Hospitalization, Congenital Anomaly, Other)
  Sender: FDA-Public Use
  Company Number: US-PFIZER INC-2011293445

PATIENT
  Sex: Male
  Weight: 2.4 kg

DRUGS (6)
  1. ZOLOFT [Suspect]
     Dosage: 50 UNKNOWN UNITS, UNK
     Route: 064
     Dates: start: 20040301
  2. MULTI-VITAMINS [Concomitant]
     Dosage: UNK
     Route: 064
     Dates: start: 20031013
  3. ZOLOFT [Suspect]
     Indication: DEPRESSION
     Dosage: 50 MG, HALF TABLET PER DAY
     Route: 064
     Dates: start: 20030521
  4. DIPHENHYDRAMINE [Concomitant]
     Dosage: UNK
     Route: 064
     Dates: start: 20030922
  5. PREDNISONE [Concomitant]
     Dosage: UNK
     Route: 064
     Dates: start: 20040414
  6. ALBUTEROL [Concomitant]
     Dosage: UNK
     Route: 064
     Dates: start: 20030922

REACTIONS (24)
  - ATRIAL SEPTAL DEFECT [None]
  - AORTIC VALVE INCOMPETENCE [None]
  - OTITIS MEDIA [None]
  - VENTRICULAR SEPTAL DEFECT [None]
  - MITRAL VALVE PROLAPSE [None]
  - FALLOT'S TETRALOGY [None]
  - RESPIRATORY FAILURE [None]
  - CONGENITAL ANOMALY [None]
  - PULMONARY VALVE STENOSIS [None]
  - HYPOSPADIAS [None]
  - CONGENITAL CENTRAL NERVOUS SYSTEM ANOMALY [None]
  - CONVULSION [None]
  - PENILE TORSION [None]
  - CARDIOMEGALY [None]
  - RIGHT VENTRICULAR HYPERTROPHY [None]
  - DIGEORGE'S SYNDROME [None]
  - BUNDLE BRANCH BLOCK RIGHT [None]
  - DOUBLE OUTLET RIGHT VENTRICLE [None]
  - CEREBRAL HAEMORRHAGE [None]
  - MITRAL VALVE INCOMPETENCE [None]
  - DEVELOPMENTAL DELAY [None]
  - FAILURE TO THRIVE [None]
  - MATERNAL EXPOSURE TIMING UNSPECIFIED [None]
  - TRICUSPID VALVE INCOMPETENCE [None]
